FAERS Safety Report 7774100-2 (Version None)
Quarter: 2011Q3

REPORT INFORMATION
  Report Type: 
  Country: None (occurrence: None)
  Receive Date: 20110923
  Receipt Date: 20110916
  Transmission Date: 20111222
  Serious: Yes (Hospitalization, Other)
  Sender: FDA-Public Use
  Company Number: US-PFIZER INC-2008067447

PATIENT
  Sex: Female

DRUGS (55)
  1. TRICOR [Concomitant]
     Dosage: 145 MG, 1X/DAY
  2. ZOFRAN [Concomitant]
     Indication: NAUSEA
     Dosage: 4 MG, AS NEEDED
  3. DRISDOL [Concomitant]
     Dosage: 1 CAPSULE WEEKLY ON SUNDAY
  4. TEQUIN [Concomitant]
     Dosage: 500 MG, UNK
  5. PENICILLIN VK [Concomitant]
     Dosage: 500 MG, UNK
  6. FENTANYL [Concomitant]
  7. NEXIUM [Concomitant]
     Dosage: 20 MG, 2X/DAY
  8. SYNTHROID [Concomitant]
     Dosage: 0.2 MG, 1X/DAY
  9. CYANOCOBALAMIN [Concomitant]
     Dosage: 1000 MCG/ML, 1 ML INJECTED MONTHLY
     Route: 030
  10. IMITREX [Concomitant]
     Indication: MIGRAINE
     Dosage: 100 MG, 1 OR 2 TABLETS IN 24 HOURS, AS NEEDED
  11. SODIUM CHLORIDE [Concomitant]
     Dosage: UNK
  12. LYRICA [Suspect]
     Dosage: 100 MG, 3X/DAY
  13. FOLIC ACID [Concomitant]
     Dosage: 1 MG, 9 TABLETS EVERY FRIDAY
  14. METHOTREXATE [Concomitant]
     Dosage: 2.5 MG, 4 TABLETS EVERY MONDAY
  15. PROZAC [Concomitant]
     Dosage: 20 MG, 2X/DAY
  16. CLONAZEPAM [Concomitant]
     Dosage: 1 MG, 1X/DAY
  17. VICODIN [Concomitant]
     Indication: PAIN
     Dosage: 7.5/500MG, 1 TABLET EVERY 4 HOURS AS NEEDED
  18. LEVBID [Concomitant]
     Dosage: 0.375 MG, 1X/DAY
  19. DIFLUCAN [Concomitant]
     Dosage: 200 MG, 1 TABLET AT ONSET, REPEAT AS NECESSARY
  20. TESTOSTERONE [Concomitant]
  21. ALBUTEROL [Concomitant]
     Indication: COUGH
     Dosage: ONE VIAL VIA NEBULIZER EVERY 4 TO 6 HOURS, WHEN NEEDED
  22. BIAXIN XL [Concomitant]
     Dosage: 500 MG, UNK
  23. ROZEREM [Concomitant]
     Dosage: 8 MG, 1X/DAY, AT NIGHT
  24. CRESTOR [Concomitant]
     Dosage: 20 MG, 1X/DAY
  25. TOPAMAX [Concomitant]
     Dosage: 100 MG, 1X/DAY
  26. DELESTROGEN [Concomitant]
     Dosage: 40 MG/ML, 1 ML INJECTED MONTHLY
     Route: 030
  27. PHENERGAN HCL [Concomitant]
     Indication: NAUSEA
     Dosage: 50 MG/ML, 1 ML INJECTED DAILY AS NEEDED
     Route: 030
  28. PROCTOSOL-HC [Concomitant]
     Indication: ANAL FISTULA
  29. FLONASE [Concomitant]
     Dosage: 1 SPRAY EACH NOSTRIL DAILY, AS NEEDED
  30. VALIUM [Concomitant]
     Dosage: 10 MG, 1X/DAY
  31. HYDROCHLOROTHIAZIDE [Concomitant]
     Indication: OEDEMA
     Dosage: 25 MG, 1X/DAY
  32. POTASSIUM CHLORIDE [Concomitant]
     Dosage: 10 MEQ, 1X/DAY
  33. NYSTATIN [Concomitant]
     Indication: CANDIDIASIS
     Dosage: 1 TEASPOONFUL FOUR TIMES DAILY
  34. BENADRYL [Concomitant]
     Indication: SLEEP DISORDER
     Dosage: 50 MG/ML, INJECT 1 ML DAILY AS NEEDED
  35. ANALPRAM-HC [Concomitant]
     Indication: ANAL FISTULA
  36. CIPROFLOXACIN [Concomitant]
     Dosage: 500 MG, UNK
  37. TRILEPTAL [Concomitant]
     Dosage: 150 MG, 1 TABLET IN THE MORNING, 2 TABLETS IN THE EVENING
  38. CYMBALTA [Concomitant]
     Dosage: 30 MG, 2X/DAY
  39. FLEXERIL [Concomitant]
     Dosage: 10 MG, 1 OR 2 DAILY AS NEEDED
  40. FLAGYL [Concomitant]
     Dosage: 500 MG, 2X/DAY
  41. LIDOCAINE [Concomitant]
     Indication: SINUS DISORDER
     Dosage: ONE SPRAY EACH NOSTRIL DAILY, AS NEEDED
  42. AUGMENTIN XR [Concomitant]
     Dosage: 1000 MG, UNK
  43. DEMEROL [Concomitant]
  44. PANGLOBULIN [Suspect]
     Dosage: UNK
  45. VERAPAMIL - SLOW RELEASE [Concomitant]
     Dosage: 240 MG, 1X/DAY
  46. ZYRTEC [Concomitant]
     Indication: HYPERSENSITIVITY
     Dosage: 10 MG, UNK
  47. AZITHROMYCIN [Concomitant]
     Dosage: 250 MG, UNK
  48. SOLU-MEDROL [Concomitant]
     Dosage: 50 MG, UNK
     Route: 042
  49. NEURONTIN [Suspect]
     Dosage: UNK
  50. POLYGAM [Suspect]
     Dosage: UNK
  51. NAPROSYN [Concomitant]
     Dosage: 500 MG, 1 OR 2 DAILY AS NEEDED
  52. WELCHOL [Concomitant]
     Dosage: 2.5 G, 1X/DAY
  53. IMITREX [Concomitant]
     Dosage: INJECT AT ONSET (REPEAT IN 1 HOUR AND USE TABLETS, AS NEEDED
  54. LIDOCAINE HYDROCHLORIDE/PRILOCAINE HYDROCHLORIDE [Concomitant]
  55. VENTOLIN HFA [Concomitant]
     Indication: COUGH
     Dosage: 2 PUFFS EVERY 3 TO 4 HOURS, WHEN NEEDED

REACTIONS (3)
  - OBSTRUCTIVE AIRWAYS DISORDER [None]
  - DELUSION [None]
  - CARDIOVASCULAR DISORDER [None]
